FAERS Safety Report 8509564-X (Version None)
Quarter: 2012Q3

REPORT INFORMATION
  Report Type: 
  Country: None (occurrence: None)
  Receive Date: 20120702
  Receipt Date: 20120614
  Transmission Date: 20120928
  Serious: Yes (Hospitalization)
  Sender: FDA-Public Use
  Company Number: 2012SP024670

PATIENT
  Sex: Female

DRUGS (1)
  1. DESOGESTRE/ETHINYL ESTRADIOL [Suspect]
     Indication: CONTRACEPTION
     Dates: start: 20120101

REACTIONS (4)
  - FATIGUE [None]
  - INAPPROPRIATE SCHEDULE OF DRUG ADMINISTRATION [None]
  - PHARYNGEAL OEDEMA [None]
  - ENTERITIS [None]
